FAERS Safety Report 5495901-X (Version None)
Quarter: 2007Q4

REPORT INFORMATION
  Report Type: 
  Country: None (occurrence: None)
  Receive Date: 20071025
  Receipt Date: 20061110
  Transmission Date: 20080405
  Serious: No
  Sender: FDA-Public Use
  Company Number: A0627041A

PATIENT
  Sex: Female

DRUGS (1)
  1. ADVAIR DISKUS 100/50 [Suspect]
     Route: 055
     Dates: start: 20061105

REACTIONS (1)
  - EXPIRED DRUG ADMINISTERED [None]
